FAERS Safety Report 23798805 (Version 1)
Quarter: 2024Q2

REPORT INFORMATION
  Report Type: Spontaneous
  Country: US (occurrence: US)
  Receive Date: 20240430
  Receipt Date: 20240430
  Transmission Date: 20240715
  Serious: No
  Sender: FDA-Public Use
  Company Number: US-TEVA-VS-3170318

PATIENT

DRUGS (1)
  1. TESTOSTERONE [Suspect]
     Active Substance: TESTOSTERONE
     Indication: Product used for unknown indication
     Dosage: FORM STRENGTH 1 PERCENT, 2.5 GRAM 30 PACKETS PER CARTON
     Route: 065

REACTIONS (1)
  - Wrong technique in product usage process [Unknown]
